FAERS Safety Report 9476718 (Version 2)
Quarter: 2013Q3

REPORT INFORMATION
  Report Type: Spontaneous
  Country: US (occurrence: US)
  Receive Date: 20130826
  Receipt Date: 20130826
  Transmission Date: 20140515
  Serious: No
  Sender: FDA-Public Use
  Company Number: US-BRISTOL-MYERS SQUIBB COMPANY-17057878

PATIENT
  Age: 34 Year
  Sex: Male
  Weight: 87.07 kg

DRUGS (2)
  1. KENALOG-40 INJ [Suspect]
     Indication: SPINAL COLUMN STENOSIS
     Route: 008
     Dates: start: 20120828
  2. KENALOG-40 INJ [Suspect]
     Indication: INTERVERTEBRAL DISC PROTRUSION
     Route: 008
     Dates: start: 20120828

REACTIONS (6)
  - Headache [Unknown]
  - Gastrooesophageal reflux disease [Unknown]
  - Blepharospasm [Recovered/Resolved]
  - Drug ineffective [Unknown]
  - Muscle spasms [Recovered/Resolved]
  - Pruritus generalised [Recovered/Resolved]
